FAERS Safety Report 6813708-5 (Version None)
Quarter: 2010Q3

REPORT INFORMATION
  Report Type: 
  Country: None (occurrence: None)
  Receive Date: 20100701
  Receipt Date: 20100624
  Transmission Date: 20110219
  Serious: Yes (Hospitalization, Other)
  Sender: FDA-Public Use
  Company Number: BR-ABBOTT-10P-020-0632626-00

PATIENT
  Sex: Female
  Weight: 65 kg

DRUGS (6)
  1. HUMIRA [Suspect]
     Indication: CROHN'S DISEASE
     Dosage: 160MG LOADING DOSE (160MG-80MG-15 DAYS)
  2. HUMIRA [Suspect]
     Dosage: 80 MG LOADING DOSE
     Route: 058
  3. HUMIRA [Suspect]
     Route: 058
  4. CIPRO [Concomitant]
     Indication: INFECTION
     Route: 048
  5. METRONIDAZOLE [Concomitant]
     Indication: PRODUCT USED FOR UNKNOWN INDICATION
     Route: 048
  6. PREDNISONE TAB [Concomitant]
     Indication: INFECTION
     Route: 048

REACTIONS (5)
  - ABSCESS [None]
  - ANAEMIA [None]
  - ANAL FISTULA [None]
  - INFECTION [None]
  - SYNCOPE [None]
